FAERS Safety Report 8197655-5 (Version None)
Quarter: 2012Q1

REPORT INFORMATION
  Report Type: 
  Country: None (occurrence: None)
  Receive Date: 20120309
  Receipt Date: 20120301
  Transmission Date: 20120608
  Serious: Yes (Hospitalization)
  Sender: FDA-Public Use
  Company Number: GB-ROCHE-756606

PATIENT
  Sex: Male
  Weight: 85 kg

DRUGS (1)
  1. MABTHERA [Suspect]
     Indication: RHEUMATOID ARTHRITIS
     Route: 065

REACTIONS (5)
  - CHOLANGITIS ACUTE [None]
  - SEPSIS [None]
  - CHOLELITHIASIS [None]
  - CHOLECYSTITIS [None]
  - GASTRODUODENAL ULCER [None]
